FAERS Safety Report 4746367-6 (Version None)
Quarter: 2005Q3

REPORT INFORMATION
  Report Type: 
  Country: None (occurrence: None)
  Receive Date: 20050815
  Receipt Date: 20050804
  Transmission Date: 20060218
  Serious: Yes (Hospitalization)
  Sender: FDA-Public Use
  Company Number: 2005BI014712

PATIENT
  Sex: Female
  Weight: 61 kg

DRUGS (4)
  1. AVONEX [Suspect]
     Indication: MULTIPLE SCLEROSIS
     Dosage: 30 UG; QW; IM
     Route: 030
     Dates: start: 20010501, end: 20030801
  2. AVONEX [Suspect]
     Indication: MULTIPLE SCLEROSIS
     Dosage: 30 UG;QW; IM
     Route: 030
     Dates: start: 20030801
  3. AVONEX [Suspect]
     Indication: MULTIPLE SCLEROSIS
     Dosage: 30 UG; QW; IM
     Route: 030
     Dates: start: 20030801
  4. THYRONAJOD [Concomitant]

REACTIONS (12)
  - BACK DISORDER [None]
  - BACK PAIN [None]
  - HAEMANGIOMA [None]
  - INFLUENZA LIKE ILLNESS [None]
  - INTERVERTEBRAL DISC PROTRUSION [None]
  - LEUKOPENIA [None]
  - MUSCLE TIGHTNESS [None]
  - NEUROPATHIC PAIN [None]
  - PAIN IN EXTREMITY [None]
  - STREPTOCOCCAL SEROLOGY POSITIVE [None]
  - WHITE BLOOD CELL COUNT DECREASED [None]
  - WHITE BLOOD CELL COUNT INCREASED [None]
